FAERS Safety Report 5248281-9 (Version None)
Quarter: 2007Q1

REPORT INFORMATION
  Report Type: 
  Country: None (occurrence: None)
  Receive Date: 20070227
  Receipt Date: 20061121
  Transmission Date: 20070707
  Serious: No
  Sender: FDA-Public Use
  Company Number: US-BRISTOL-MYERS SQUIBB COMPANY-13585617

PATIENT
  Sex: Female
  Weight: 55 kg

DRUGS (3)
  1. GLUCOPHAGE [Suspect]
  2. MOTRIN [Concomitant]
  3. GLYBURIDE [Concomitant]

REACTIONS (1)
  - DIARRHOEA [None]
